FAERS Safety Report 6972915-1 (Version None)
Quarter: 2010Q3

REPORT INFORMATION
  Report Type: 
  Country: None (occurrence: None)
  Receive Date: 20100909
  Receipt Date: 20100903
  Transmission Date: 20110219
  Serious: Yes (Hospitalization, Other)
  Sender: FDA-Public Use
  Company Number: IL-ROXANE LABORATORIES, INC.-2010-RO-01183RO

PATIENT
  Age: 60 Year
  Sex: Female
  Weight: 52 kg

DRUGS (6)
  1. FUROSEMIDE [Suspect]
  2. FUROSEMIDE [Suspect]
  3. PREDNISONE [Suspect]
     Indication: RENAL FAILURE ACUTE
     Dosage: 40 MG
     Route: 048
  4. ORLISTAT [Suspect]
  5. NSAID [Suspect]
     Indication: MONARTHRITIS
  6. ETORICOXIB [Suspect]
     Indication: ARTHRALGIA
     Dosage: 90 MG

REACTIONS (5)
  - DRUG ABUSE [None]
  - DRUG INEFFECTIVE [None]
  - MONARTHRITIS [None]
  - RENAL FAILURE ACUTE [None]
  - RENAL FAILURE CHRONIC [None]
